FAERS Safety Report 19213055 (Version 2)
Quarter: 2021Q2

REPORT INFORMATION
  Report Type: Report from Study
  Country: US (occurrence: US)
  Receive Date: 20210504
  Receipt Date: 20210513
  Transmission Date: 20210717
  Serious: Yes (Hospitalization, Other)
  Sender: FDA-Public Use
  Company Number: US-BAYER-2021-122720

PATIENT
  Age: 19 Year
  Sex: Female

DRUGS (3)
  1. STIVARGA [Suspect]
     Active Substance: REGORAFENIB
     Indication: BRAIN NEOPLASM MALIGNANT
     Dosage: DAILY DOSE 160 MG FOR 21 DAYS ON THEN 7 DYS OFF
     Route: 048
     Dates: start: 20210419, end: 20210429
  2. STIVARGA [Suspect]
     Active Substance: REGORAFENIB
     Indication: BRAIN NEOPLASM MALIGNANT
     Dosage: DAILY DOSE 160 MG
     Route: 048
     Dates: start: 20210414, end: 202104
  3. GLEOSTINE [Concomitant]
     Active Substance: LOMUSTINE
     Dosage: UNK

REACTIONS (14)
  - Dehydration [Not Recovered/Not Resolved]
  - Abdominal pain upper [Not Recovered/Not Resolved]
  - Chromaturia [Not Recovered/Not Resolved]
  - Pharyngeal ulceration [Recovering/Resolving]
  - Fatigue [Not Recovered/Not Resolved]
  - Thrombocytopenia [Recovered/Resolved]
  - Stomatitis [Recovered/Resolved]
  - Product use in unapproved indication [Recovered/Resolved]
  - Diarrhoea [Not Recovered/Not Resolved]
  - Mouth ulceration [Recovering/Resolving]
  - Blood pressure increased [Not Recovered/Not Resolved]
  - Off label use [Recovered/Resolved]
  - Diarrhoea [None]
  - Feeding disorder [Not Recovered/Not Resolved]

NARRATIVE: CASE EVENT DATE: 202104
